FAERS Safety Report 11511946 (Version 1)
Quarter: 2015Q3

REPORT INFORMATION
  Report Type: Spontaneous
  Country: FR (occurrence: FR)
  Receive Date: 20150916
  Receipt Date: 20150916
  Transmission Date: 20151125
  Serious: Yes (Other)
  Sender: FDA-Public Use
  Company Number: FR-ROCHE-1633847

PATIENT
  Age: 84 Year
  Sex: Female

DRUGS (13)
  1. PRAVASTATIN SODIUM. [Concomitant]
     Active Substance: PRAVASTATIN SODIUM
  2. INNOHEP [Concomitant]
     Active Substance: TINZAPARIN SODIUM
  3. LASILIX [Concomitant]
     Active Substance: FUROSEMIDE
  4. ERIVEDGE [Suspect]
     Active Substance: VISMODEGIB
     Indication: SQUAMOUS CELL CARCINOMA OF SKIN
     Route: 048
     Dates: start: 20150610
  5. LEVOTHYROX [Concomitant]
     Active Substance: LEVOTHYROXINE
  6. AUGMENTIN [Concomitant]
     Active Substance: AMOXICILLIN\CLAVULANATE POTASSIUM
  7. MAGNE B6 [Concomitant]
     Active Substance: MAGNESIUM\PYRIDOXINE
  8. VALSARTAN. [Concomitant]
     Active Substance: VALSARTAN
  9. DISCOTRINE [Concomitant]
     Active Substance: NITROGLYCERIN
  10. DOLIPRANE [Concomitant]
     Active Substance: ACETAMINOPHEN
  11. INNOVAIR [Concomitant]
     Active Substance: BECLOMETHASONE DIPROPIONATE\FORMOTEROL
  12. SPIRIVA RESPIMAT [Concomitant]
     Active Substance: TIOTROPIUM BROMIDE
  13. AMIODARONE [Concomitant]
     Active Substance: AMIODARONE

REACTIONS (1)
  - Acute kidney injury [Recovering/Resolving]

NARRATIVE: CASE EVENT DATE: 20150618
